FAERS Safety Report 12826783 (Version 2)
Quarter: 2019Q3

REPORT INFORMATION
  Report Type: Spontaneous
  Country: US (occurrence: US)
  Receive Date: 20161007
  Receipt Date: 20190715
  Transmission Date: 20191004
  Serious: Yes (Other)
  Sender: FDA-Public Use
  Company Number: US-INCYTE CORPORATION-2016IN006192

PATIENT

DRUGS (2)
  1. JAKAFI [Suspect]
     Active Substance: RUXOLITINIB
     Dosage: 25 MILLIGRAM, BID
     Route: 048
     Dates: start: 20170101
  2. JAKAFI [Suspect]
     Active Substance: RUXOLITINIB
     Indication: POLYCYTHAEMIA VERA
     Dosage: 25 MG, BID
     Route: 048
     Dates: start: 20160804

REACTIONS (4)
  - Basal cell carcinoma [Unknown]
  - Dry skin [Unknown]
  - Abdominal pain [Unknown]
  - Blood cholesterol increased [Unknown]
